FAERS Safety Report 15285008 (Version 1)
Quarter: 2018Q3

REPORT INFORMATION
  Report Type: Spontaneous
  Country: CN (occurrence: CN)
  Receive Date: 20180816
  Receipt Date: 20180816
  Transmission Date: 20181010
  Serious: Yes (Death)
  Sender: FDA-Public Use
  Company Number: CN-ASTELLAS-2018US032314

PATIENT
  Age: 88 Year
  Sex: Male

DRUGS (1)
  1. MYCAMINE [Suspect]
     Active Substance: MICAFUNGIN SODIUM
     Indication: PRODUCT USED FOR UNKNOWN INDICATION
     Dosage: 100 MG, ONCE DAILY  (AT ONE TIME)
     Route: 042
     Dates: start: 20180614

REACTIONS (1)
  - Hypersensitivity [Fatal]

NARRATIVE: CASE EVENT DATE: 20180623
